FAERS Safety Report 4728124-X (Version None)
Quarter: 2005Q3

REPORT INFORMATION
  Report Type: 
  Country: None (occurrence: None)
  Receive Date: 20050729
  Receipt Date: 20050629
  Transmission Date: 20060218
  Serious: Yes (Other)
  Sender: FDA-Public Use
  Company Number: JP-SP-2005-01259

PATIENT
  Age: 70 Year
  Sex: Female

DRUGS (4)
  1. IMMUCYST [Suspect]
     Indication: BLADDER CANCER
     Route: 043
     Dates: start: 20050430, end: 20050603
  2. IMMUCYST [Suspect]
     Route: 043
     Dates: start: 20050430, end: 20050603
  3. IMMUCYST [Suspect]
     Route: 043
     Dates: start: 20050430, end: 20050603
  4. LEVOFLOXACIN [Concomitant]
     Dates: start: 20050427, end: 20050430

REACTIONS (7)
  - ARTHRALGIA [None]
  - CYSTITIS [None]
  - JOINT SWELLING [None]
  - OCULAR HYPERAEMIA [None]
  - POLLAKIURIA [None]
  - POLYARTHRITIS [None]
  - PYREXIA [None]
